FAERS Safety Report 5917711-9 (Version None)
Quarter: 2008Q4

REPORT INFORMATION
  Report Type: 
  Country: None (occurrence: None)
  Receive Date: 20081014
  Receipt Date: 20081003
  Transmission Date: 20090506
  Serious: Yes (Hospitalization)
  Sender: FDA-Public Use
  Company Number: US-AVENTIS-200818195GDDC

PATIENT
  Age: 67 Year
  Sex: Male
  Weight: 93 kg

DRUGS (3)
  1. TAXOTERE [Suspect]
     Route: 042
     Dates: start: 20080811, end: 20080811
  2. CISPLATIN [Suspect]
     Route: 042
     Dates: start: 20080811, end: 20080811
  3. FLUOROURACIL [Suspect]
     Dosage: DOSE: 750 DAILY X 5 DAYS
     Route: 042
     Dates: start: 20080811, end: 20080815

REACTIONS (7)
  - BACTERAEMIA [None]
  - HYPOTENSION [None]
  - NEUTROPENIA [None]
  - PYREXIA [None]
  - RENAL FAILURE ACUTE [None]
  - RESPIRATORY FAILURE [None]
  - SEPTIC SHOCK [None]
